FAERS Safety Report 4372385-6 (Version None)
Quarter: 2004Q2

REPORT INFORMATION
  Report Type: 
  Country: None (occurrence: None)
  Receive Date: 20040526
  Receipt Date: 20040520
  Transmission Date: 20050107
  Serious: Yes (Death, Life-Threatening, Hospitalization)
  Sender: FDA-Public Use
  Company Number: MK200209-0280-01

PATIENT
  Age: 71 Year
  Sex: Female

DRUGS (7)
  1. CONRAY 30 [Suspect]
     Indication: SPINAL MYELOGRAM
     Dates: start: 20020923, end: 20020923
  2. TWO ORAL ANTIHYPERGLYCEMIC DRUGS [Concomitant]
  3. A LIPID LOWERING DRUG [Concomitant]
  4. AN ANTIHYPERTENSIVE DRUG [Concomitant]
  5. A PROTON PUMP INHIBITOR [Concomitant]
  6. AN ANXIOLYTIC AGENT [Concomitant]
  7. ASPIRIN [Concomitant]

REACTIONS (21)
  - AREFLEXIA [None]
  - BLOOD PRESSURE INCREASED [None]
  - BRADYCARDIA [None]
  - CARDIAC ARREST [None]
  - CARDIO-RESPIRATORY ARREST [None]
  - COMA [None]
  - CONFUSIONAL STATE [None]
  - CONTRAST MEDIA REACTION [None]
  - ELECTROMECHANICAL DISSOCIATION [None]
  - ENURESIS [None]
  - HYPOAESTHESIA [None]
  - HYPOTENSION [None]
  - HYPOTONIA [None]
  - MYDRIASIS [None]
  - NERVOUS SYSTEM DISORDER [None]
  - PAIN IN EXTREMITY [None]
  - POST PROCEDURAL COMPLICATION [None]
  - SOMNOLENCE [None]
  - TONIC CLONIC MOVEMENTS [None]
  - UNRESPONSIVE TO PAIN STIMULI [None]
  - VOMITING [None]
